FAERS Safety Report 5958971-8 (Version None)
Quarter: 2008Q4

REPORT INFORMATION
  Report Type: 
  Country: None (occurrence: None)
  Receive Date: 20081117
  Receipt Date: 20081031
  Transmission Date: 20090506
  Serious: Yes (Hospitalization, Other)
  Sender: FDA-Public Use
  Company Number: 2008ST000242

PATIENT
  Age: 78 Year
  Sex: Female

DRUGS (15)
  1. OMEPRAZOLE/SODIUM BICARBONATE [Suspect]
     Indication: DIVERTICULUM
  2. OMEPRAZOLE/SODIUM BICARBONATE [Suspect]
     Indication: DUODENITIS
  3. OMEPRAZOLE/SODIUM BICARBONATE [Suspect]
     Indication: HIATUS HERNIA
  4. SPIRONOLACTONE [Concomitant]
  5. BUMETANIDE [Concomitant]
  6. FUROSEMIDE [Concomitant]
  7. GABAPENTIN [Concomitant]
  8. ACETAMINOPHEN W/ CODEINE [Concomitant]
  9. HYOSCINE HBR HYT [Concomitant]
  10. NITROGLYCERIN [Concomitant]
  11. LOSARTAN POTASSIUM [Concomitant]
  12. ASPIRIN [Concomitant]
  13. ATORVASTATIN CALCIUM [Concomitant]
  14. IPRATROPIUM BROMIDE [Concomitant]
  15. SALMETEROL [Concomitant]

REACTIONS (7)
  - CHRONIC OBSTRUCTIVE PULMONARY DISEASE [None]
  - HYPOCALCAEMIA [None]
  - HYPOKALAEMIA [None]
  - HYPOMAGNESAEMIA [None]
  - HYPOPHOSPHATAEMIA [None]
  - NO THERAPEUTIC RESPONSE [None]
  - OEDEMA PERIPHERAL [None]
